FAERS Safety Report 6546851-9 (Version None)
Quarter: 2010Q1

REPORT INFORMATION
  Report Type: 
  Country: None (occurrence: None)
  Receive Date: 20100119
  Receipt Date: 20100104
  Transmission Date: 20100710
  Serious: Yes (Other)
  Sender: FDA-Public Use
  Company Number: 2010S1000017

PATIENT
  Age: 57 Year
  Sex: Male
  Weight: 89.8122 kg

DRUGS (1)
  1. PHOSPHOSODA FLAVOR NOT SPECIFIED [Suspect]
     Indication: COLONOSCOPY
     Dosage: PO
     Route: 048
     Dates: start: 20060314, end: 20060315

REACTIONS (4)
  - HYPERLIPIDAEMIA [None]
  - HYPERPARATHYROIDISM SECONDARY [None]
  - RENAL FAILURE CHRONIC [None]
  - RENAL MASS [None]
